FAERS Safety Report 8985536 (Version 1)
Quarter: 2012Q4

REPORT INFORMATION
  Report Type: 
  Country: FR (occurrence: FR)
  Receive Date: 20121226
  Receipt Date: 20121226
  Transmission Date: 20130627
  Serious: Yes (Hospitalization)
  Sender: FDA-Public Use
  Company Number: FR-ASTRAZENECA-2012SE94706

PATIENT
  Age: 24874 Day
  Sex: Male

DRUGS (2)
  1. XEROQUEL [Suspect]
     Route: 048
     Dates: end: 20121108
  2. TERALITHE [Concomitant]
     Route: 048
     Dates: end: 20121108

REACTIONS (3)
  - Eye movement disorder [Recovered/Resolved]
  - Withdrawal syndrome [Recovered/Resolved]
  - Dyskinesia [Recovered/Resolved]
